FAERS Safety Report 6991291-1 (Version None)
Quarter: 2010Q3

REPORT INFORMATION
  Report Type: 
  Country: None (occurrence: None)
  Receive Date: 20100916
  Receipt Date: 20081022
  Transmission Date: 20110219
  Serious: No
  Sender: FDA-Public Use
  Company Number: US-WYE-H06530308

PATIENT
  Sex: Female

DRUGS (2)
  1. PREMARIN [Suspect]
     Dosage: FULL DOSE
     Route: 048
     Dates: start: 19880101
  2. PREMARIN [Suspect]
     Dosage: CUT THE DOSE TO HALF STRENGTH
     Route: 048

REACTIONS (3)
  - FIBROCYSTIC BREAST DISEASE [None]
  - MEMORY IMPAIRMENT [None]
  - THERAPEUTIC RESPONSE UNEXPECTED [None]
